FAERS Safety Report 7407111-7 (Version None)
Quarter: 2011Q2

REPORT INFORMATION
  Report Type: 
  Country: None (occurrence: None)
  Receive Date: 20110411
  Receipt Date: 20110401
  Transmission Date: 20111010
  Serious: Yes (Hospitalization, Other)
  Sender: FDA-Public Use
  Company Number: CHPA2011US04813

PATIENT
  Age: 5 Year
  Sex: Female
  Weight: 62 kg

DRUGS (2)
  1. TRIAMINIC NIGHT TIME COLD + COUGH [Suspect]
     Indication: COUGH
  2. TRIAMINIC NIGHT TIME COLD + COUGH [Suspect]
     Indication: NASOPHARYNGITIS
     Dosage: 1 TSP, QD
     Route: 048
     Dates: start: 20110114, end: 20110115

REACTIONS (8)
  - GRAND MAL CONVULSION [None]
  - EYE MOVEMENT DISORDER [None]
  - TREMOR [None]
  - VOMITING [None]
  - URINARY INCONTINENCE [None]
  - OVERDOSE [None]
  - PNEUMONIA [None]
  - CONVULSION [None]
